FAERS Safety Report 8347459-5 (Version None)
Quarter: 2012Q2

REPORT INFORMATION
  Report Type: 
  Country: None (occurrence: None)
  Receive Date: 20120509
  Receipt Date: 20120210
  Transmission Date: 20120825
  Serious: No
  Sender: FDA-Public Use
  Company Number: US-GLAXOSMITHKLINE-A0965529A

PATIENT
  Age: 36 Year
  Sex: Male

DRUGS (2)
  1. VELTIN [Suspect]
     Indication: ACNE
     Route: 061
     Dates: start: 20120201, end: 20120210
  2. NO CONCURRENT MEDICATION [Concomitant]

REACTIONS (3)
  - PRURITUS [None]
  - SKIN EXFOLIATION [None]
  - ADVERSE DRUG REACTION [None]
